APPROVED DRUG PRODUCT: GLIPIZIDE
Active Ingredient: GLIPIZIDE
Strength: 10MG
Dosage Form/Route: TABLET, EXTENDED RELEASE;ORAL
Application: A076159 | Product #001
Applicant: PH HEALTH LTD
Approved: Sep 20, 2013 | RLD: No | RS: No | Type: DISCN